FAERS Safety Report 7255570-5 (Version None)
Quarter: 2011Q1

REPORT INFORMATION
  Report Type: 
  Country: None (occurrence: None)
  Receive Date: 20110129
  Receipt Date: 20100421
  Transmission Date: 20110831
  Serious: No
  Sender: FDA-Public Use
  Company Number: US-ABBOTT-10P-163-0639899-00

PATIENT
  Sex: Male
  Weight: 74.91 kg

DRUGS (2)
  1. HUMIRA [Suspect]
     Indication: COLITIS ULCERATIVE
     Route: 058
     Dates: start: 20090701
  2. SUPPLEMENTS [Concomitant]
     Indication: PRODUCT USED FOR UNKNOWN INDICATION

REACTIONS (2)
  - BOWEL MOVEMENT IRREGULARITY [None]
  - INAPPROPRIATE SCHEDULE OF DRUG ADMINISTRATION [None]
